FAERS Safety Report 23794092 (Version 1)
Quarter: 2024Q2

REPORT INFORMATION
  Report Type: Spontaneous
  Country: US (occurrence: None)
  Receive Date: 20240426
  Receipt Date: 20240426
  Transmission Date: 20240716
  Serious: Yes (Hospitalization)
  Sender: FDA-Public Use
  Company Number: None

PATIENT
  Age: 48 Year
  Sex: Male
  Weight: 88.4 kg

DRUGS (2)
  1. NIRMATRELVIR\RITONAVIR [Suspect]
     Active Substance: NIRMATRELVIR\RITONAVIR
     Indication: COVID-19
     Dosage: 150 /100 MG BID PO
     Route: 048
     Dates: start: 20230212, end: 20230216
  2. CARBAMAZEPINE [Suspect]
     Active Substance: CARBAMAZEPINE
     Indication: Seizure
     Dosage: 200  MG TID PO
     Route: 048
     Dates: start: 20190519

REACTIONS (8)
  - Toxicity to various agents [None]
  - Fall [None]
  - Speech disorder [None]
  - SARS-CoV-2 test positive [None]
  - Neurosis [None]
  - Therapy cessation [None]
  - Anticonvulsant drug level increased [None]
  - Drug interaction [None]

NARRATIVE: CASE EVENT DATE: 20230220
